FAERS Safety Report 18346603 (Version 1)
Quarter: 2020Q4

REPORT INFORMATION
  Report Type: Report from Study
  Country: CA (occurrence: CA)
  Receive Date: 20201005
  Receipt Date: 20201005
  Transmission Date: 20210114
  Serious: Yes (Other)
  Sender: FDA-Public Use
  Company Number: CA-PFIZER INC-2020347787

PATIENT
  Age: 60 Year
  Sex: Female
  Weight: 134 kg

DRUGS (9)
  1. ERGOCALCIFEROL. [Suspect]
     Active Substance: ERGOCALCIFEROL
     Dosage: UNK
     Route: 065
  2. RAMIPRIL. [Suspect]
     Active Substance: RAMIPRIL
     Dosage: UNK
     Route: 065
  3. FUROSEMIDE. [Suspect]
     Active Substance: FUROSEMIDE
     Dosage: UNK
     Route: 065
  4. SENOKOT [Suspect]
     Active Substance: SENNOSIDES
     Dosage: UNK
     Route: 065
  5. METFORMIN [Suspect]
     Active Substance: METFORMIN HYDROCHLORIDE
     Dosage: UNK
     Route: 065
  6. RABEPRAZOLE [Suspect]
     Active Substance: RABEPRAZOLE
     Dosage: UNK
     Route: 065
  7. FEMARA [Suspect]
     Active Substance: LETROZOLE
     Indication: METASTASES TO PERITONEUM
     Dosage: 2.5 MG, QD
     Route: 048
  8. PREGABALIN. [Suspect]
     Active Substance: PREGABALIN
     Dosage: UNK
     Route: 065
  9. MAGNESIUM SULFATE. [Suspect]
     Active Substance: MAGNESIUM SULFATE
     Dosage: UNK
     Route: 065

REACTIONS (8)
  - Abdominal distension [Unknown]
  - Blood pressure decreased [Unknown]
  - Off label use [Unknown]
  - Postmenopausal haemorrhage [Unknown]
  - Carbohydrate antigen 125 increased [Unknown]
  - Central obesity [Unknown]
  - Product use in unapproved indication [Unknown]
  - Muscular weakness [Unknown]
